FAERS Safety Report 5482098-5 (Version None)
Quarter: 2007Q4

REPORT INFORMATION
  Report Type: 
  Country: None (occurrence: None)
  Receive Date: 20071011
  Receipt Date: 20071002
  Transmission Date: 20080405
  Serious: Yes (Other)
  Sender: FDA-Public Use
  Company Number: PHFR2007GB01425

PATIENT
  Age: 28 Year
  Sex: Male

DRUGS (3)
  1. CLOZARIL [Suspect]
     Dosage: 250MG DAILY
     Route: 048
     Dates: start: 19990316
  2. ATENOLOL [Concomitant]
     Dosage: 25MG / DAILY
     Route: 065
  3. ATENOLOL [Concomitant]
     Dosage: 50MG / DAILY

REACTIONS (7)
  - BUNDLE BRANCH BLOCK RIGHT [None]
  - CARDIOMEGALY [None]
  - ELECTROCARDIOGRAM ST-T CHANGE [None]
  - HEART RATE INCREASED [None]
  - MYOCARDIAL ISCHAEMIA [None]
  - NOREPINEPHRINE INCREASED [None]
  - SINUS TACHYCARDIA [None]
